FAERS Safety Report 20116797 (Version 2)
Quarter: 2021Q4

REPORT INFORMATION
  Report Type: Spontaneous
  Country: FR (occurrence: FR)
  Receive Date: 20211126
  Receipt Date: 20211228
  Transmission Date: 20220303
  Serious: Yes (Death, Hospitalization, Disabling, Other)
  Sender: FDA-Public Use
  Company Number: FR-SA-2021SA389768

PATIENT
  Age: 50 Year
  Sex: Female

DRUGS (1)
  1. DUPIXENT [Suspect]
     Active Substance: DUPILUMAB
     Indication: Dermatitis atopic
     Dosage: 300 MG, QOW (EVERY 2 WEEKS)
     Route: 058
     Dates: start: 201802, end: 201805

REACTIONS (6)
  - Anaplastic large-cell lymphoma [Fatal]
  - Skin plaque [Fatal]
  - Rash erythematous [Fatal]
  - Breast ulceration [Fatal]
  - Loss of personal independence in daily activities [Unknown]
  - Lymphadenopathy [Unknown]

NARRATIVE: CASE EVENT DATE: 20180501
